FAERS Safety Report 15432668 (Version 1)
Quarter: 2018Q3

REPORT INFORMATION
  Report Type: Report from Study
  Country: None (occurrence: AU)
  Receive Date: 20180927
  Receipt Date: 20180927
  Transmission Date: 20181010
  Serious: Yes (Other)
  Sender: FDA-Public Use
  Company Number: AU-ABBVIE-18S-008-2492832-00

PATIENT
  Age: 79 Year
  Sex: Female

DRUGS (1)
  1. DUODOPA [Suspect]
     Active Substance: CARBIDOPA\LEVODOPA
     Indication: PARKINSON^S DISEASE
     Dosage: 100ML GEL CASSETTE, 16HR/DAILY
     Route: 050
     Dates: start: 201512

REACTIONS (4)
  - Device issue [Unknown]
  - Stoma site erythema [Unknown]
  - Ovarian cancer metastatic [Unknown]
  - Device leakage [Unknown]

NARRATIVE: CASE EVENT DATE: 2016
